FAERS Safety Report 6434464-9 (Version None)
Quarter: 2009Q4

REPORT INFORMATION
  Report Type: 
  Country: None (occurrence: None)
  Receive Date: 20091110
  Receipt Date: 20091029
  Transmission Date: 20100525
  Serious: Yes (Death, Hospitalization)
  Sender: FDA-Public Use
  Company Number: CH-PFIZER INC-2009290915

PATIENT
  Age: 64 Year
  Sex: Male

DRUGS (16)
  1. DIFLUCAN [Suspect]
     Dosage: 400 MG, ALTERNATE DAY
     Route: 048
     Dates: start: 20090709, end: 20090717
  2. PROGRAF [Interacting]
     Dosage: 1.5 MG, 1X/DAY
     Route: 048
     Dates: end: 20090718
  3. PROGRAF [Interacting]
     Dosage: 0.2 MG, 2X/DAY
     Route: 048
     Dates: start: 20090719, end: 20090806
  4. IMUREK [Concomitant]
     Dosage: 75 MG, 1X/DAY
     Route: 048
  5. IMUREK [Concomitant]
     Dosage: 50 MG, 2X/DAY
     Route: 048
     Dates: start: 20090806
  6. PREDNISONE [Concomitant]
     Dosage: 20 MG, 1X/DAY
     Route: 048
  7. TORASEMIDE [Concomitant]
     Dosage: 10 MG, 2X/DAY
     Route: 048
  8. ATORVASTATIN CALCIUM [Concomitant]
     Dosage: 80 MG, 1X/DAY
     Route: 048
  9. CALCIMAGON-D3 [Concomitant]
     Dosage: 1 DF, 2X/DAY
     Route: 048
  10. METOPROLOL SUCCINATE [Concomitant]
     Dosage: 50 MG, 1X/DAY
     Route: 048
  11. OXYCONTIN [Concomitant]
     Dosage: 50 MG, 2X/DAY
     Route: 048
  12. NOVOMIX [Concomitant]
     Dosage: UNK IU, AS NEEDED
     Route: 058
  13. DAFALGAN [Concomitant]
     Dosage: 500 MG, AS NEEDED
     Route: 048
  14. PRIMOFENAC [Concomitant]
     Dosage: UNK
     Route: 061
  15. PARAGOL [Concomitant]
     Dosage: 20 MG, AS NEEDED
     Route: 048
  16. HEPARIN [Concomitant]
     Dosage: 17000 IU, 1X/DAY
     Route: 058

REACTIONS (1)
  - RENAL IMPAIRMENT [None]
